FAERS Safety Report 7501866-9 (Version None)
Quarter: 2011Q2

REPORT INFORMATION
  Report Type: 
  Country: None (occurrence: None)
  Receive Date: 20110525
  Receipt Date: 20110520
  Transmission Date: 20111010
  Serious: Yes (Other)
  Sender: FDA-Public Use
  Company Number: US-BAYER-2011-043941

PATIENT
  Age: 30 Year
  Sex: Female

DRUGS (2)
  1. YASMIN [Suspect]
     Dosage: UNK
     Route: 048
     Dates: start: 20060701, end: 20080301
  2. YAZ [Suspect]
     Dosage: UNK
     Route: 048
     Dates: start: 20060701, end: 20080301

REACTIONS (8)
  - INJURY [None]
  - PSYCHIATRIC SYMPTOM [None]
  - PULMONARY EMBOLISM [None]
  - FEAR [None]
  - PAIN [None]
  - EMOTIONAL DISTRESS [None]
  - ANHEDONIA [None]
  - ANXIETY [None]
